FAERS Safety Report 9779223 (Version 1)
Quarter: 2013Q4

REPORT INFORMATION
  Report Type: Spontaneous
  Country: IT (occurrence: IT)
  Receive Date: 20131223
  Receipt Date: 20131223
  Transmission Date: 20140711
  Serious: No
  Sender: FDA-Public Use
  Company Number: PHHY2013IT149322

PATIENT
  Age: 59 Year
  Sex: Female

DRUGS (1)
  1. ZOMETA [Suspect]
     Indication: METASTASES TO BONE
     Dosage: 4 MG CYCLIC
     Route: 042
     Dates: start: 20120915, end: 20130930

REACTIONS (1)
  - Osteonecrosis of jaw [Not Recovered/Not Resolved]
